FAERS Safety Report 17313723 (Version 1)
Quarter: 2020Q1

REPORT INFORMATION
  Report Type: Spontaneous
  Country: US (occurrence: US)
  Receive Date: 20200107
  Receipt Date: 20200107
  Transmission Date: 20200409
  Serious: Yes (Hospitalization)
  Sender: FDA-Public Use
  Company Number: None

PATIENT
  Age: 34 Year
  Sex: Female
  Weight: 85 kg

DRUGS (1)
  1. MIRTAZAPINE (MIRTAZAPINE 15MG TAB, UD) [Suspect]
     Active Substance: MIRTAZAPINE
     Indication: OVERDOSE

REACTIONS (2)
  - Suicide attempt [None]
  - Intentional overdose [None]

NARRATIVE: CASE EVENT DATE: 20191215
